FAERS Safety Report 8699789 (Version 4)
Quarter: 2013Q1

REPORT INFORMATION
  Report Type: Report from Study
  Country: JP (occurrence: JP)
  Receive Date: 20120802
  Receipt Date: 20130123
  Transmission Date: 20140127
  Serious: Yes (Hospitalization)
  Sender: FDA-Public Use
  Company Number: JP-JNJFOC-20120714212

PATIENT
  Age: 48 Year
  Sex: Male
  Weight: 75 kg

DRUGS (14)
  1. SIMPONI [Suspect]
     Indication: RHEUMATOID ARTHRITIS
     Route: 058
     Dates: start: 20120822
  2. SIMPONI [Suspect]
     Indication: RHEUMATOID ARTHRITIS
     Route: 058
     Dates: start: 20120530
  3. SIMPONI [Suspect]
     Indication: RHEUMATOID ARTHRITIS
     Route: 058
     Dates: start: 20111212, end: 20120511
  4. METOLATE [Suspect]
     Indication: RHEUMATOID ARTHRITIS
     Dates: start: 20120307, end: 20120511
  5. METOLATE [Suspect]
     Indication: RHEUMATOID ARTHRITIS
     Dates: start: 20110411, end: 20120307
  6. METOLATE [Suspect]
     Indication: RHEUMATOID ARTHRITIS
     Dates: start: 20120522
  7. PROGRAF [Suspect]
     Indication: RHEUMATOID ARTHRITIS
     Dates: start: 20120404, end: 20120511
  8. SALAZOSULFAPYRIDINE [Concomitant]
     Indication: RHEUMATOID ARTHRITIS
     Dates: end: 20120404
  9. ALLOPURINOL [Concomitant]
     Indication: GOUT
     Route: 048
     Dates: end: 20120627
  10. FOLIAMIN [Concomitant]
     Indication: PROPHYLAXIS
     Route: 048
     Dates: start: 20120531
  11. FOLIAMIN [Concomitant]
     Indication: PROPHYLAXIS
     Route: 048
     Dates: end: 20120530
  12. ISONIAZID [Concomitant]
     Indication: PROPHYLAXIS
     Route: 048
     Dates: start: 20111130, end: 20120919
  13. ALLEGRA [Concomitant]
     Route: 048
     Dates: start: 20120307, end: 20120404
  14. FLUNASE [Concomitant]
     Route: 045
     Dates: start: 20120307, end: 20120404

REACTIONS (2)
  - Pneumonia bacterial [Recovered/Resolved]
  - Acute tonsillitis [Recovered/Resolved]
